FAERS Safety Report 6204746-4 (Version None)
Quarter: 2009Q2

REPORT INFORMATION
  Report Type: 
  Country: None (occurrence: None)
  Receive Date: 20090527
  Receipt Date: 20090422
  Transmission Date: 20091009
  Serious: Yes (Death)
  Sender: FDA-Public Use
  Company Number: DE-PFIZER INC-2009162017

PATIENT
  Age: 64 Year

DRUGS (3)
  1. IRINOTECAN HCL [Suspect]
     Indication: COLORECTAL CANCER METASTATIC
     Dosage: 80 MG/M2, 1 IN 1 WK
     Route: 042
     Dates: start: 20080814
  2. ERBITUX [Suspect]
     Indication: COLORECTAL CANCER METASTATIC
     Dosage: 500 MG/M2, ONCE
     Route: 042
     Dates: start: 20080814, end: 20080814
  3. ERBITUX [Suspect]
     Dosage: 250 MG/M2, 1 IN 1 WK
     Route: 042
     Dates: start: 20080820, end: 20080924

REACTIONS (3)
  - CEREBRAL HAEMORRHAGE [None]
  - PRURITUS [None]
  - SUDDEN DEATH [None]
